FAERS Safety Report 9499183 (Version 1)
Quarter: 2013Q3

REPORT INFORMATION
  Report Type: Report from Study
  Country: US (occurrence: US)
  Receive Date: 20130905
  Receipt Date: 20130905
  Transmission Date: 20140515
  Serious: No
  Sender: FDA-Public Use
  Company Number: US-009507513-1308USA008638

PATIENT
  Age: 23 Year
  Sex: Female
  Weight: 87.98 kg

DRUGS (1)
  1. IMPLANON [Suspect]
     Dosage: UNK
     Route: 059
     Dates: start: 20130508, end: 20130819

REACTIONS (4)
  - Haemorrhage [Unknown]
  - Acne [Unknown]
  - Premenstrual syndrome [Unknown]
  - Medical device removal [Unknown]
